FAERS Safety Report 6115188-4 (Version None)
Quarter: 2009Q1

REPORT INFORMATION
  Report Type: 
  Country: None (occurrence: None)
  Receive Date: 20090313
  Receipt Date: 20090303
  Transmission Date: 20090719
  Serious: Yes (Other)
  Sender: FDA-Public Use
  Company Number: US-JNJFOC-20090300855

PATIENT
  Sex: Female

DRUGS (8)
  1. REMICADE [Suspect]
     Indication: PSORIATIC ARTHROPATHY
     Route: 042
  2. REMICADE [Suspect]
     Indication: RHEUMATOID ARTHRITIS
     Route: 042
  3. LISINOPRIL [Concomitant]
     Indication: BLOOD PRESSURE
  4. SYNTHROID [Concomitant]
     Indication: HYPOTHYROIDISM
  5. FENTANYL-25 [Concomitant]
     Indication: PAIN
  6. ZOLOFT [Concomitant]
     Indication: DEPRESSION
  7. LASIX [Concomitant]
     Indication: BLOOD PRESSURE
  8. POTASSIUM CHLORIDE [Concomitant]
     Indication: MEDICAL DIET

REACTIONS (4)
  - EXTRADURAL ABSCESS [None]
  - FOOT OPERATION [None]
  - IMPAIRED HEALING [None]
  - OSTEOMYELITIS [None]
